FAERS Safety Report 6505471-2 (Version None)
Quarter: 2009Q4

REPORT INFORMATION
  Report Type: 
  Country: None (occurrence: None)
  Receive Date: 20091218
  Receipt Date: 20091215
  Transmission Date: 20100525
  Serious: Yes (Death)
  Sender: FDA-Public Use
  Company Number: US-GILEAD-2009-0026024

PATIENT
  Sex: Female
  Weight: 127.12 kg

DRUGS (12)
  1. LETAIRIS [Suspect]
     Indication: PULMONARY ARTERIAL HYPERTENSION
     Route: 048
     Dates: start: 20090113
  2. COREG [Concomitant]
  3. TORSEMIDE [Concomitant]
  4. LEVAQUIN [Concomitant]
  5. MIRAPEX [Concomitant]
  6. PLAQUENIL [Concomitant]
  7. NEURONTIN [Concomitant]
  8. METFORMIN HCL [Concomitant]
  9. GLIMEPIRIDE [Concomitant]
  10. NEXIUM [Concomitant]
  11. LEXAPRO [Concomitant]
  12. OXYGEN [Concomitant]

REACTIONS (1)
  - DEATH [None]
